FAERS Safety Report 11074020 (Version 1)
Quarter: 2015Q2

REPORT INFORMATION
  Report Type: Spontaneous
  Country: JP (occurrence: JP)
  Receive Date: 20150429
  Receipt Date: 20150429
  Transmission Date: 20150821
  Serious: Yes (Other)
  Sender: FDA-Public Use
  Company Number: JP-ROCHE-1486547

PATIENT
  Sex: Female
  Weight: 85 kg

DRUGS (2)
  1. ACTEMRA [Suspect]
     Active Substance: TOCILIZUMAB
     Indication: CASTLEMAN^S DISEASE
     Route: 041
     Dates: start: 20140924, end: 20141022
  2. PREDONINE [Concomitant]
     Active Substance: PREDNISOLONE\PREDNISOLONE ACETATE\PREDNISOLONE SODIUM SUCCINATE
     Indication: CASTLEMAN^S DISEASE
     Route: 048
     Dates: start: 20140704

REACTIONS (3)
  - Hodgkin^s disease [Unknown]
  - Drug ineffective [Unknown]
  - Lymphadenopathy [Not Recovered/Not Resolved]
